FAERS Safety Report 20328017 (Version 1)
Quarter: 2022Q1

REPORT INFORMATION
  Report Type: Spontaneous
  Country: US (occurrence: US)
  Receive Date: 20220112
  Receipt Date: 20220112
  Transmission Date: 20220423
  Serious: No
  Sender: FDA-Public Use
  Company Number: US-EVOFEM BIOSCIENCES, INC.-2021-EVO-US003310

PATIENT

DRUGS (3)
  1. PHEXXI [Suspect]
     Active Substance: CITRIC ACID MONOHYDRATE\LACTIC ACID, L-\POTASSIUM BITARTRATE
     Indication: Contraception
     Dosage: 5 G AS NEEDED (USED LESS THAN 1 HOUR PRIOR TO INTERCOURSE)
     Route: 067
     Dates: start: 202012
  2. VALACYCLOVIR [Suspect]
     Active Substance: VALACYCLOVIR HYDROCHLORIDE
     Indication: Herpes virus infection
     Dosage: 500 MG AS DIRECTED
     Route: 048
  3. ABILIFY [Suspect]
     Active Substance: ARIPIPRAZOLE
     Indication: Product used for unknown indication
     Dosage: 5 MG, DAILY
     Dates: start: 202012

REACTIONS (3)
  - Pregnancy [Unknown]
  - Drug ineffective [Unknown]
  - Pelvic pain [Unknown]

NARRATIVE: CASE EVENT DATE: 20210501
